FAERS Safety Report 8839736 (Version 1)
Quarter: 2012Q4

REPORT INFORMATION
  Report Type: 
  Country: US (occurrence: US)
  Receive Date: 20121015
  Receipt Date: 20121015
  Transmission Date: 20130627
  Serious: Yes (Hospitalization)
  Sender: FDA-Public Use
  Company Number: US-NOVOPROD-361606

PATIENT
  Sex: Male

DRUGS (2)
  1. NOVOLIN N [Suspect]
     Indication: DIABETES MELLITUS
     Route: 058
  2. NOVOLIN R [Suspect]
     Indication: DIABETES MELLITUS
     Route: 058

REACTIONS (7)
  - Infection [Unknown]
  - Pain [Unknown]
  - Chest pain [Unknown]
  - Pain in extremity [Unknown]
  - Rash [Unknown]
  - Cellulitis [Unknown]
  - Malaise [Unknown]
